FAERS Safety Report 15792182 (Version 1)
Quarter: 2019Q1

REPORT INFORMATION
  Report Type: Spontaneous
  Country: US (occurrence: US)
  Receive Date: 20190107
  Receipt Date: 20190107
  Transmission Date: 20190417
  Serious: No
  Sender: FDA-Public Use
  Company Number: US-LEO PHARMA-316027

PATIENT
  Age: 63 Year
  Sex: Female

DRUGS (2)
  1. PROLIA [Concomitant]
     Active Substance: DENOSUMAB
     Indication: PRODUCT USED FOR UNKNOWN INDICATION
     Dosage: SHOT
  2. PICATO [Suspect]
     Active Substance: INGENOL MEBUTATE
     Indication: ACTINIC KERATOSIS
     Dosage: TWO TUBES ONCE A DAY FOR THREE DAYS
     Route: 061
     Dates: start: 20181227, end: 20181229

REACTIONS (7)
  - Application site photosensitivity reaction [Not Recovered/Not Resolved]
  - Eye pain [Not Recovered/Not Resolved]
  - Application site swelling [Recovering/Resolving]
  - Medication error [Unknown]
  - Headache [Not Recovered/Not Resolved]
  - Product administration error [Unknown]
  - Application site vesicles [Recovering/Resolving]

NARRATIVE: CASE EVENT DATE: 20181127
